FAERS Safety Report 7771027-7 (Version None)
Quarter: 2011Q3

REPORT INFORMATION
  Report Type: 
  Country: None (occurrence: None)
  Receive Date: 20110922
  Receipt Date: 20110128
  Transmission Date: 20111222
  Serious: No
  Sender: FDA-Public Use
  Company Number: US-ASTRAZENECA-2011SE05145

PATIENT
  Age: 36 Year
  Sex: Female
  Weight: 97.5 kg

DRUGS (2)
  1. SEROQUEL [Suspect]
     Dosage: 3 1/2 TABS DAILY TOTAL DAILY DOSE 300MG
     Route: 048
  2. ZOMIG [Suspect]
     Route: 048

REACTIONS (1)
  - NASOPHARYNGITIS [None]
